FAERS Safety Report 24049671 (Version 1)
Quarter: 2024Q3

REPORT INFORMATION
  Report Type: Spontaneous
  Country: FR (occurrence: FR)
  Receive Date: 20240704
  Receipt Date: 20240704
  Transmission Date: 20241017
  Serious: Yes (Hospitalization)
  Sender: RANBAXY
  Company Number: FR-SUN PHARMACEUTICAL INDUSTRIES LTD-2024RR-454731

PATIENT
  Age: 58 Year
  Sex: Male
  Weight: 90.8 kg

DRUGS (12)
  1. ACETAMINOPHEN [Suspect]
     Active Substance: ACETAMINOPHEN
     Indication: Product used for unknown indication
     Dosage: UNK
     Route: 048
     Dates: start: 20240207
  2. LENALIDOMIDE [Suspect]
     Active Substance: LENALIDOMIDE
     Indication: Plasma cell myeloma
     Dosage: 25 MILLIGRAM, 21/28 DAYS
     Route: 048
     Dates: start: 20240207, end: 20240320
  3. CETIRIZINE [Suspect]
     Active Substance: CETIRIZINE HYDROCHLORIDE
     Indication: Product used for unknown indication
     Dosage: UNK
     Route: 048
     Dates: start: 20240207
  4. ROXITHROMYCIN [Suspect]
     Active Substance: ROXITHROMYCIN
     Indication: Product used for unknown indication
     Dosage: UNK
     Route: 048
     Dates: start: 20240116, end: 20240220
  5. AMOXICILLIN [Suspect]
     Active Substance: AMOXICILLIN
     Indication: Product used for unknown indication
     Dosage: 1 GRAM, DAILY, 500 MG MORNING AND EVENING
     Route: 048
     Dates: start: 20240203, end: 20240320
  6. CEFTRIAXONE [Suspect]
     Active Substance: CEFTRIAXONE\CEFTRIAXONE SODIUM
     Indication: Product used for unknown indication
     Dosage: UNK
     Route: 040
     Dates: start: 20240116, end: 20240220
  7. BORTEZOMIB [Suspect]
     Active Substance: BORTEZOMIB
     Indication: Plasma cell myeloma
     Dosage: UNK
     Route: 040
     Dates: start: 20240207, end: 20240313
  8. ELIQUIS [Suspect]
     Active Substance: APIXABAN
     Indication: Product used for unknown indication
     Dosage: 5 MILLIGRAM, DAILY, 2.5 MG MORNING AND EVENING
     Route: 048
     Dates: start: 20240203
  9. DARZALEX [Suspect]
     Active Substance: DARATUMUMAB
     Indication: Plasma cell myeloma
     Dosage: UNK
     Route: 040
     Dates: start: 20240207, end: 20240313
  10. VALACYCLOVIR HYDROCHLORIDE [Suspect]
     Active Substance: VALACYCLOVIR HYDROCHLORIDE
     Indication: Prophylaxis
     Dosage: 1 GRAM, DAILY, 500 MG MORNING AND EVENING
     Route: 048
     Dates: start: 20240203, end: 20240320
  11. DEXAMETHASONE [Suspect]
     Active Substance: DEXAMETHASONE
     Indication: Product used for unknown indication
     Dosage: UNK
     Route: 048
     Dates: start: 20240207, end: 20240313
  12. BACTRIM [Suspect]
     Active Substance: SULFAMETHOXAZOLE\TRIMETHOPRIM
     Indication: Prophylaxis
     Dosage: 3 DOSAGE FORM, 1/WEEK
     Route: 048
     Dates: start: 20240203, end: 20240320

REACTIONS (1)
  - Drug reaction with eosinophilia and systemic symptoms [Recovering/Resolving]

NARRATIVE: CASE EVENT DATE: 20240401
